FAERS Safety Report 9459871 (Version 1)
Quarter: 2013Q3

REPORT INFORMATION
  Report Type: Spontaneous
  Country: FR (occurrence: FR)
  Receive Date: 20130815
  Receipt Date: 20130815
  Transmission Date: 20140515
  Serious: Yes (Hospitalization)
  Sender: FDA-Public Use
  Company Number: FR-ASTRAZENECA-2013SE62214

PATIENT
  Age: 29296 Day
  Sex: Female

DRUGS (9)
  1. MOPRAL [Suspect]
     Route: 048
     Dates: end: 20130724
  2. CAPTEA [Suspect]
     Indication: HYPERTENSION
     Route: 048
     Dates: end: 20130724
  3. TANAKAN [Concomitant]
  4. GLUCOPHAGE [Concomitant]
  5. HYPERIUM [Concomitant]
  6. KARDEGIC [Concomitant]
  7. SIMVASTATINE [Concomitant]
  8. ISOPTINE [Concomitant]
  9. ZYLORIC [Concomitant]

REACTIONS (2)
  - Hypokalaemia [Recovered/Resolved]
  - Hyponatraemia [Recovered/Resolved]
